FAERS Safety Report 9868882 (Version 1)
Quarter: 2014Q1

REPORT INFORMATION
  Report Type: Report from Study
  Country: DE (occurrence: DE)
  Receive Date: 20140204
  Receipt Date: 20140204
  Transmission Date: 20141002
  Serious: Yes (Hospitalization)
  Sender: FDA-Public Use
  Company Number: DE-UCBSA-110879

PATIENT
  Age: 79 Year
  Sex: Female
  Weight: 62 kg

DRUGS (12)
  1. LEGANTO [Suspect]
     Indication: RESTLESS LEGS SYNDROME
     Route: 062
  2. LIPROLOG [Concomitant]
     Indication: DIABETES MELLITUS
     Dosage: 100 UNITS/ML, }3 TIMES DAILY
     Route: 058
  3. LEVEMIR [Concomitant]
     Indication: DIABETES MELLITUS
     Dosage: 100 UNITS/ML
     Route: 058
  4. CLOPIDOGREL [Concomitant]
     Indication: PLATELET AGGREGATION DECREASED
     Route: 048
  5. DIGIMERCK MINOR [Concomitant]
     Indication: CARDIOMYOPATHY ALCOHOLIC
     Route: 048
  6. ASS [Concomitant]
     Indication: PLATELET AGGREGATION DECREASED
     Route: 048
  7. CODIOVAN [Concomitant]
     Indication: HYPERTENSION
     Dosage: 100,25 MG
     Route: 048
  8. ATORVASTIN [Concomitant]
     Indication: HYPERCHOLESTEROLAEMIA
     Route: 048
  9. L-THYROXINE [Concomitant]
     Indication: THYROID FUNCTION TEST ABNORMAL
     Route: 048
  10. DOPEDURA C [Concomitant]
     Indication: RESTLESS LEGS SYNDROME
     Dosage: 50, 200MG
     Route: 048
  11. DOPEDURA C [Concomitant]
     Indication: RESTLESS LEGS SYNDROME
     Dosage: 50, 200MG
     Route: 048
  12. ALLOPURINOL [Concomitant]
     Indication: CORONARY ARTERY DISEASE
     Route: 048

REACTIONS (3)
  - Myocardial infarction [Unknown]
  - Polyneuropathy [Unknown]
  - Varicose vein [Unknown]
